FAERS Safety Report 13031712 (Version 2)
Quarter: 2017Q1

REPORT INFORMATION
  Report Type: Spontaneous
  Country: CN (occurrence: CN)
  Receive Date: 20161215
  Receipt Date: 20170123
  Transmission Date: 20170428
  Serious: Yes (Other)
  Sender: FDA-Public Use
  Company Number: CN-BAYER-2016-233930

PATIENT
  Age: 42 Year
  Sex: Female
  Weight: 47.5 kg

DRUGS (3)
  1. MIRENA [Suspect]
     Active Substance: LEVONORGESTREL
     Indication: ADENOMYOSIS
     Dosage: 20 MCG/24HR, CONT
     Route: 015
     Dates: start: 2014
  2. MIRENA [Suspect]
     Active Substance: LEVONORGESTREL
     Indication: MENORRHAGIA
  3. MIRENA [Suspect]
     Active Substance: LEVONORGESTREL
     Indication: PAIN

REACTIONS (6)
  - Amenorrhoea [None]
  - White blood cell count decreased [None]
  - Off label use [Recovering/Resolving]
  - Uterine leiomyoma [None]
  - Invasive ductal breast carcinoma [None]
  - Therapeutic response unexpected [None]

NARRATIVE: CASE EVENT DATE: 2014
